FAERS Safety Report 4434778-8 (Version None)
Quarter: 2004Q3

REPORT INFORMATION
  Report Type: 
  Country: None (occurrence: None)
  Receive Date: 20040827
  Receipt Date: 20040816
  Transmission Date: 20050211
  Serious: Yes (Hospitalization)
  Sender: FDA-Public Use
  Company Number: US-BRISTOL-MYERS SQUIBB COMPANY-12671905

PATIENT
  Age: 70 Year
  Sex: Male

DRUGS (3)
  1. TRIAMCINOLONE [Suspect]
     Indication: ARTHRALGIA
     Route: 008
  2. TRIAMCINOLONE [Suspect]
     Indication: BACK PAIN
     Route: 008
  3. LIDOCAINE [Concomitant]
     Indication: BACK PAIN
     Dosage: 1%
     Route: 008

REACTIONS (2)
  - EXTRADURAL ABSCESS [None]
  - MENINGITIS [None]
